FAERS Safety Report 21823359 (Version 1)
Quarter: 2023Q1

REPORT INFORMATION
  Report Type: Report from Study
  Country: CA (occurrence: CA)
  Receive Date: 20230105
  Receipt Date: 20230105
  Transmission Date: 20230417
  Serious: Yes (Death, Other)
  Sender: FDA-Public Use
  Company Number: CA-TAKEDA-2023TUS001006

PATIENT
  Age: 9 Year
  Sex: Male

DRUGS (1)
  1. VEDOLIZUMAB [Suspect]
     Active Substance: VEDOLIZUMAB
     Indication: Acute graft versus host disease
     Dosage: 300 MILLIGRAM
     Route: 042
     Dates: start: 20220614

REACTIONS (2)
  - Death [Fatal]
  - Off label use [Unknown]
